FAERS Safety Report 22219679 (Version 2)
Quarter: 2023Q2

REPORT INFORMATION
  Report Type: Spontaneous
  Country: CN (occurrence: CN)
  Receive Date: 20230417
  Receipt Date: 20230509
  Transmission Date: 20230721
  Serious: Yes (Other)
  Sender: FDA-Public Use
  Company Number: CN-JNJFOC-20230414150

PATIENT
  Sex: Male

DRUGS (4)
  1. RISPERDAL [Suspect]
     Active Substance: RISPERIDONE
     Indication: Product used for unknown indication
     Dosage: 20 TABLET/BOX, FOR MORE THAN TEN YEARS
     Route: 048
  2. RISPERDAL [Suspect]
     Active Substance: RISPERIDONE
     Dosage: 2 BOXES, 20 TABLET/BOX
     Route: 048
     Dates: start: 202212
  3. RISPERDAL [Suspect]
     Active Substance: RISPERIDONE
     Dosage: 2 BOXES OF RISPERIDONE TABLETS (RISPERDAL, 1 MG* 20 TABLET/BOX)  PRODUCTION DATE: 09-SEP-2020
     Route: 048
     Dates: start: 20230301
  4. RISPERDAL [Suspect]
     Active Substance: RISPERIDONE
     Dosage: 1 MG* 20 TABLET/BOX
     Route: 048

REACTIONS (4)
  - Hallucination, auditory [Recovering/Resolving]
  - Suspected counterfeit product [Unknown]
  - Drug ineffective [Unknown]
  - Somnolence [Recovering/Resolving]

NARRATIVE: CASE EVENT DATE: 20230101
